FAERS Safety Report 22356717 (Version 2)
Quarter: 2023Q2

REPORT INFORMATION
  Report Type: Report from Study
  Country: US (occurrence: US)
  Receive Date: 20230523
  Receipt Date: 20230531
  Transmission Date: 20230722
  Serious: Yes (Hospitalization)
  Sender: FDA-Public Use
  Company Number: US-PFIZER INC-US-GBT-019697

PATIENT
  Age: 39 Year
  Sex: Male

DRUGS (18)
  1. VOXELOTOR [Suspect]
     Active Substance: VOXELOTOR
     Indication: Sickle cell disease
     Dosage: 1500 MG, QD
     Route: 048
     Dates: start: 20200630, end: 20201102
  2. VOXELOTOR [Suspect]
     Active Substance: VOXELOTOR
     Indication: Anaemia
     Dosage: 1000 MG, QD
     Route: 048
     Dates: start: 20201112, end: 20201207
  3. VOXELOTOR [Suspect]
     Active Substance: VOXELOTOR
     Dosage: 1000 MG, QD
     Route: 048
     Dates: start: 20201211, end: 20210206
  4. VOXELOTOR [Suspect]
     Active Substance: VOXELOTOR
     Dosage: UNK
     Route: 048
     Dates: start: 202104, end: 20210603
  5. VOXELOTOR [Suspect]
     Active Substance: VOXELOTOR
     Dosage: UNK
     Route: 048
     Dates: start: 20210611, end: 20210907
  6. VOXELOTOR [Suspect]
     Active Substance: VOXELOTOR
     Dosage: UNK
     Route: 048
     Dates: start: 20210910, end: 20211112
  7. VOXELOTOR [Suspect]
     Active Substance: VOXELOTOR
     Dosage: UNK
     Route: 048
     Dates: start: 20211114, end: 20220110
  8. VOXELOTOR [Suspect]
     Active Substance: VOXELOTOR
     Dosage: UNK
     Route: 048
     Dates: start: 20220115, end: 20220214
  9. VOXELOTOR [Suspect]
     Active Substance: VOXELOTOR
     Dosage: UNK
     Route: 048
     Dates: start: 20220220, end: 20220731
  10. FOLVITE [Concomitant]
     Active Substance: FOLIC ACID
     Indication: Sickle cell disease
     Dosage: 1 MG, QD
     Route: 048
     Dates: start: 20190613
  11. ROXICODONE [Concomitant]
     Active Substance: OXYCODONE HYDROCHLORIDE
     Indication: Sickle cell disease
     Dosage: 10 MG, Q6H
     Route: 048
     Dates: start: 20210423
  12. DOLOPHINE [Concomitant]
     Active Substance: METHADONE HYDROCHLORIDE
     Indication: Sickle cell disease
     Dosage: 10 MG, TID
     Route: 048
     Dates: start: 20201211
  13. DOLOPHINE [Concomitant]
     Active Substance: METHADONE HYDROCHLORIDE
     Dosage: 5 MG, TID
     Route: 048
     Dates: start: 20210218
  14. ENDARI [Concomitant]
     Active Substance: GLUTAMINE
     Indication: Sickle cell disease
     Dosage: 15 MG, BID
     Route: 048
     Dates: start: 20220224
  15. VITAMINS NOS [Concomitant]
     Active Substance: VITAMINS
     Indication: Sickle cell disease
     Dosage: 1 TABLET QD
     Route: 048
     Dates: start: 20181227
  16. SENOKOT [Concomitant]
     Active Substance: SENNOSIDES
     Indication: Sickle cell disease
     Dosage: 8.6 MG, NIGHTLY
     Route: 048
     Dates: start: 20190131
  17. ZOLOFT [Concomitant]
     Active Substance: SERTRALINE HYDROCHLORIDE
     Indication: Depression
     Dosage: 50 MG, QD
     Route: 048
     Dates: start: 20221119
  18. ZOLOFT [Concomitant]
     Active Substance: SERTRALINE HYDROCHLORIDE
     Indication: Anxiety

REACTIONS (1)
  - Sickle cell anaemia with crisis [Recovered/Resolved]

NARRATIVE: CASE EVENT DATE: 20220731
